FAERS Safety Report 4687349-2 (Version None)
Quarter: 2005Q2

REPORT INFORMATION
  Report Type: 
  Country: None (occurrence: None)
  Receive Date: 20050608
  Receipt Date: 20050601
  Transmission Date: 20051028
  Serious: Yes (Other)
  Sender: FDA-Public Use
  Company Number: 004941

PATIENT
  Sex: Female

DRUGS (5)
  1. MEDROXYPROGESTERONE ACETATE [Suspect]
     Dates: start: 19940101, end: 20000101
  2. CYCRIN [Suspect]
     Dates: start: 19940101, end: 20000101
  3. PROVERA [Suspect]
     Dates: start: 19940101, end: 20000101
  4. OGEN [Suspect]
     Dates: start: 19940101, end: 20000101
  5. ESTROPIPATE [Suspect]
     Dates: start: 19940101, end: 20000101

REACTIONS (1)
  - BREAST CANCER FEMALE [None]
